FAERS Safety Report 5272311-1 (Version None)
Quarter: 2007Q1

REPORT INFORMATION
  Report Type: 
  Country: None (occurrence: None)
  Receive Date: 20070320
  Receipt Date: 20070320
  Transmission Date: 20070707
  Serious: Yes (Other)
  Sender: FDA-Public Use
  Company Number: None

PATIENT
  Sex: Female
  Weight: 86.1834 kg

DRUGS (1)
  1. DEPLIN 7.5 MG [Suspect]
     Indication: HYPERSENSITIVITY
     Dosage: 1 TABLET ONCE A DAY PO
     Route: 048
     Dates: start: 20070311, end: 20070314

REACTIONS (1)
  - DRUG HYPERSENSITIVITY [None]
